FAERS Safety Report 4371542-2 (Version None)
Quarter: 2004Q2

REPORT INFORMATION
  Report Type: 
  Country: None (occurrence: None)
  Receive Date: 20040607
  Receipt Date: 20040525
  Transmission Date: 20050107
  Serious: Yes (Death, Other)
  Sender: FDA-Public Use
  Company Number: NSADSS2002019865

PATIENT
  Sex: Male
  Weight: 92 kg

DRUGS (8)
  1. REMICADE [Suspect]
     Route: 041
     Dates: start: 20010101, end: 20011218
  2. REMICADE [Suspect]
     Indication: RHEUMATOID ARTHRITIS
     Route: 041
     Dates: start: 20010101, end: 20011218
  3. METHOTREXATE [Concomitant]
     Indication: RHEUMATOID ARTHRITIS
     Route: 049
  4. GLUCOR [Concomitant]
     Indication: DIABETES MELLITUS
     Route: 049
  5. GLUCOPHAGE [Concomitant]
     Indication: DIABETES MELLITUS
     Route: 049
  6. CELEBREX [Concomitant]
     Indication: RHEUMATOID ARTHRITIS
     Route: 049
  7. ACETAMINOPHEN [Concomitant]
     Indication: RHEUMATOID ARTHRITIS
     Route: 049
  8. CODEINE [Concomitant]
     Indication: RHEUMATOID ARTHRITIS
     Route: 049

REACTIONS (4)
  - GAMMOPATHY [None]
  - IMMUNOGLOBULINS INCREASED [None]
  - METASTATIC BRONCHIAL CARCINOMA [None]
  - SQUAMOUS CELL CARCINOMA [None]
